FAERS Safety Report 23525594 (Version 5)
Quarter: 2024Q2

REPORT INFORMATION
  Report Type: Report from Study
  Country: US (occurrence: US)
  Receive Date: 20240215
  Receipt Date: 20240612
  Transmission Date: 20240716
  Serious: Yes (Hospitalization)
  Sender: FDA-Public Use
  Company Number: US-BoehringerIngelheim-2023-BI-262035

PATIENT
  Age: 78 Year
  Sex: Male

DRUGS (3)
  1. OFEV [Suspect]
     Active Substance: NINTEDANIB
     Indication: Idiopathic pulmonary fibrosis
     Route: 048
     Dates: start: 20230913, end: 20240429
  2. OFEV [Suspect]
     Active Substance: NINTEDANIB
     Indication: Interstitial lung disease
     Route: 048
  3. LISINOPRIL [Suspect]
     Active Substance: LISINOPRIL
     Indication: Product used for unknown indication

REACTIONS (29)
  - Renal aneurysm [Not Recovered/Not Resolved]
  - Blood pressure increased [Recovered/Resolved]
  - Nausea [Recovered/Resolved]
  - Dizziness postural [Recovered/Resolved]
  - Tooth abscess [Not Recovered/Not Resolved]
  - Alanine aminotransferase increased [Not Recovered/Not Resolved]
  - Aspartate aminotransferase increased [Not Recovered/Not Resolved]
  - Diarrhoea [Unknown]
  - Blood pressure increased [Not Recovered/Not Resolved]
  - Peripheral swelling [Not Recovered/Not Resolved]
  - Blood pressure increased [Recovered/Resolved with Sequelae]
  - Pancreatic disorder [Unknown]
  - Abdominal pain upper [Unknown]
  - Cough [Not Recovered/Not Resolved]
  - Paranasal sinus hypersecretion [Recovering/Resolving]
  - Dyspnoea exertional [Unknown]
  - Blood pressure fluctuation [Not Recovered/Not Resolved]
  - Balance disorder [Unknown]
  - Thrombosis [Not Recovered/Not Resolved]
  - Vertigo [Recovered/Resolved]
  - Vertigo [Not Recovered/Not Resolved]
  - Dizziness [Not Recovered/Not Resolved]
  - Headache [Not Recovered/Not Resolved]
  - Hypertension [Recovering/Resolving]
  - Vomiting [Recovered/Resolved]
  - Dyspepsia [Unknown]
  - Sinusitis [Unknown]
  - Depressed mood [Unknown]
  - Fatigue [Unknown]

NARRATIVE: CASE EVENT DATE: 20240122
